FAERS Safety Report 8015293-1 (Version None)
Quarter: 2011Q4

REPORT INFORMATION
  Report Type: 
  Country: None (occurrence: None)
  Receive Date: 20111223
  Receipt Date: 20111213
  Transmission Date: 20120403
  Serious: Yes (Other)
  Sender: FDA-Public Use
  Company Number: 1000024368

PATIENT
  Age: 79 Year
  Sex: Male
  Weight: 77 kg

DRUGS (7)
  1. BUDECORT (BUDESONIDE) (400 MICROGRAM) (BUDESONIDE) [Concomitant]
  2. SPIRIVA (TIOTROPIUM BROMIDE) (18 MICROGRAM) (TIOTROPIUM BROMIDE) [Concomitant]
  3. ALLOBETA (300 MILLIGRAM) [Concomitant]
  4. FORMOTOP (FORMOTEROL FUMARATE) (12 MICROGRAM) (FORMOTEROL FUMARATE) [Concomitant]
  5. ROFLUMILAST (ROFLUMILAST) (TABLETS) [Suspect]
     Indication: CHRONIC OBSTRUCTIVE PULMONARY DISEASE
     Dosage: 500 MCG (500 MCG,1 IN 1 D),ORAL
     Route: 048
     Dates: start: 20110311, end: 20110322
  6. THEOPHYLLINE (THEOPHYLLINE) (375 MILLIGRAM) (THEOPHYLLINE) [Concomitant]
  7. RAMIPRIL [Concomitant]

REACTIONS (13)
  - NAUSEA [None]
  - HYPERHIDROSIS [None]
  - VISUAL IMPAIRMENT [None]
  - APALLIC SYNDROME [None]
  - ABDOMINAL DISCOMFORT [None]
  - DECREASED APPETITE [None]
  - PHOTOPSIA [None]
  - CIRCULATORY COLLAPSE [None]
  - AGEUSIA [None]
  - CORONARY ARTERY DISEASE [None]
  - CONDITION AGGRAVATED [None]
  - AORTIC VALVE INCOMPETENCE [None]
  - PULMONARY FIBROSIS [None]
